FAERS Safety Report 8380144-2 (Version None)
Quarter: 2012Q2

REPORT INFORMATION
  Report Type: 
  Country: None (occurrence: None)
  Receive Date: 20120523
  Receipt Date: 20110622
  Transmission Date: 20120825
  Serious: No
  Sender: FDA-Public Use
  Company Number: US-PFIZER INC-IDR-00490

PATIENT
  Sex: Female

DRUGS (1)
  1. INDERAL LA [Suspect]
     Indication: BLOOD PRESSURE INCREASED
     Dosage: 80 MG, UNK
     Dates: start: 20110401

REACTIONS (2)
  - DRUG INEFFECTIVE [None]
  - ALOPECIA [None]
